FAERS Safety Report 8086547-8 (Version None)
Quarter: 2012Q1

REPORT INFORMATION
  Report Type: 
  Country: None (occurrence: None)
  Receive Date: 20120128
  Receipt Date: 20110413
  Transmission Date: 20120608
  Serious: No
  Sender: FDA-Public Use
  Company Number: US-ABBOTT-11P-163-0719299-00

PATIENT
  Sex: Female
  Weight: 86.26 kg

DRUGS (2)
  1. HUMIRA [Suspect]
     Indication: PSORIATIC ARTHROPATHY
     Route: 058
     Dates: start: 20110201
  2. HUMIRA [Suspect]
     Indication: PSORIASIS
     Route: 058
     Dates: start: 20110101, end: 20110201

REACTIONS (5)
  - RASH PAPULAR [None]
  - ARTHRITIS [None]
  - FOLLICULITIS [None]
  - UPPER RESPIRATORY TRACT INFECTION [None]
  - NASOPHARYNGITIS [None]
